FAERS Safety Report 9457968 (Version 2)
Quarter: 2013Q3

REPORT INFORMATION
  Report Type: Spontaneous
  Country: US (occurrence: None)
  Receive Date: 20130809
  Receipt Date: 20130819
  Transmission Date: 20140515
  Serious: Yes (Death, Hospitalization)
  Sender: FDA-Public Use
  Company Number: US-012504

PATIENT
  Age: 70 Year
  Sex: Male
  Weight: 56.7 kg

DRUGS (13)
  1. DEGARELIX [Suspect]
     Indication: PROSTATE CANCER
     Dates: start: 20121126, end: 201306
  2. AFINITOR [Concomitant]
  3. METFORMIN [Concomitant]
  4. HEMAX [Concomitant]
  5. CREON [Concomitant]
  6. VITAMIN D3 [Concomitant]
  7. LASIX [Concomitant]
  8. TOPROL [Concomitant]
  9. ZANTAC [Concomitant]
  10. K-DUR [Concomitant]
  11. ARIXTRA [Concomitant]
  12. SANDOSTATIN LAR [Concomitant]
  13. SYNTHROID [Concomitant]

REACTIONS (4)
  - Renal failure [None]
  - Metastases to pelvis [None]
  - Tumour compression [None]
  - Venous occlusion [None]
